FAERS Safety Report 26121966 (Version 1)
Quarter: 2025Q4

REPORT INFORMATION
  Report Type: Spontaneous
  Country: JP (occurrence: JP)
  Receive Date: 20251204
  Receipt Date: 20251204
  Transmission Date: 20260118
  Serious: Yes (Hospitalization)
  Sender: PFIZER
  Company Number: JP-PFIZER INC-PV202500140523

PATIENT
  Age: 69 Year
  Sex: Female

DRUGS (7)
  1. PAXLOVID [Suspect]
     Active Substance: NIRMATRELVIR\RITONAVIR
     Indication: COVID-19 treatment
     Dosage: 1 SHEET IN TWO DIVIDED DOSES AFTER BREAKFAST AND DINNER
     Route: 048
     Dates: start: 20250930, end: 20250930
  2. BENIDIPINE [Concomitant]
     Active Substance: BENIDIPINE
     Dosage: UNK
     Route: 048
     Dates: end: 20250930
  3. PITAVASTATIN CALCIUM OD TOWA [Concomitant]
     Dosage: UNK
     Route: 048
     Dates: end: 20250930
  4. ISOSORBIDE DINITRATE [Concomitant]
     Active Substance: ISOSORBIDE DINITRATE
     Dosage: UNK
     Route: 048
     Dates: end: 20250930
  5. CARVEDILOL TOWA [Concomitant]
     Dosage: 0.5 TABLETS
     Route: 048
     Dates: end: 20250930
  6. FLUTICASONE FUROATE\VILANTEROL TRIFENATATE [Concomitant]
     Active Substance: FLUTICASONE FUROATE\VILANTEROL TRIFENATATE
     Dosage: 30 PUFFS INHALER
     Dates: end: 20250930
  7. FEXOFENADINE [Concomitant]
     Active Substance: FEXOFENADINE HYDROCHLORIDE
     Dosage: UNK
     Route: 048
     Dates: end: 20250930

REACTIONS (4)
  - Shock [Recovered/Resolved]
  - Bradycardia [Recovered/Resolved]
  - Loss of consciousness [Recovered/Resolved]
  - Hypotension [Recovered/Resolved]

NARRATIVE: CASE EVENT DATE: 20250930
